FAERS Safety Report 5295675-1 (Version None)
Quarter: 2007Q2

REPORT INFORMATION
  Report Type: 
  Country: None (occurrence: None)
  Receive Date: 20070410
  Receipt Date: 20070410
  Transmission Date: 20071010
  Serious: Yes (Disabling)
  Sender: FDA-Public Use
  Company Number: None

PATIENT
  Age: 74 Year
  Sex: Female
  Weight: 55.9 kg

DRUGS (2)
  1. HYDRALAZINE HCL [Suspect]
     Indication: HYPERTENSION
     Dosage: 5MG  Q4H PRN   IV BOLUS  (DURATION: 1 DOSE)
     Route: 040
     Dates: start: 20070406, end: 20070406
  2. INVANZ [Suspect]
     Indication: INFECTION
     Dosage: 1 GRAM  Q24H   IV DRIP  (DURATION: 3 DOSES)
     Route: 041
     Dates: start: 20070406, end: 20070408

REACTIONS (1)
  - GRAND MAL CONVULSION [None]
